FAERS Safety Report 6764915-1 (Version None)
Quarter: 2010Q2

REPORT INFORMATION
  Report Type: 
  Country: None (occurrence: None)
  Receive Date: 20100609
  Receipt Date: 20100505
  Transmission Date: 20101027
  Serious: No
  Sender: FDA-Public Use
  Company Number: 2010010915

PATIENT
  Sex: Male

DRUGS (2)
  1. CHILDREN'S ZYRTEC ALLERGY [Suspect]
     Indication: RESPIRATORY DISORDER
     Dosage: ORAL
     Route: 048
  2. IBUPROFEN [Suspect]
     Indication: RESPIRATORY DISORDER

REACTIONS (2)
  - FATIGUE [None]
  - OFF LABEL USE [None]
